FAERS Safety Report 4444086-7 (Version None)
Quarter: 2004Q3

REPORT INFORMATION
  Report Type: 
  Country: None (occurrence: None)
  Receive Date: 20040729
  Receipt Date: 20010731
  Transmission Date: 20050211
  Serious: Yes (Death)
  Sender: FDA-Public Use
  Company Number: KII-2001-0000617

PATIENT
  Age: 46 Year
  Sex: Male

DRUGS (1)
  1. MS CONTIN [Suspect]
     Indication: DRUG USE FOR UNKNOWN INDICATION
     Dosage: 30 MG, Q12H

REACTIONS (1)
  - OVERDOSE [None]
